FAERS Safety Report 6810982-6 (Version None)
Quarter: 2010Q2

REPORT INFORMATION
  Report Type: 
  Country: None (occurrence: None)
  Receive Date: 20100630
  Receipt Date: 20090313
  Transmission Date: 20101027
  Serious: No
  Sender: FDA-Public Use
  Company Number: US-PFIZER INC-2008151013

PATIENT
  Sex: Female
  Weight: 72.574 kg

DRUGS (14)
  1. NICOTROL [Suspect]
     Indication: SMOKING CESSATION THERAPY
     Dosage: UNK
     Dates: start: 20081101
  2. PRILOSEC [Concomitant]
     Dosage: UNK
  3. POTASSIUM [Concomitant]
     Dosage: UNK
  4. VITAMIN B-12 [Concomitant]
     Dosage: UNK
  5. MULTIVITAMINS AND IRON [Concomitant]
     Dosage: UNK
  6. CALCIUM CARBONATE [Concomitant]
     Dosage: UNK
  7. MAGNESIUM [Concomitant]
     Dosage: UNK
  8. VITAMIN D [Concomitant]
     Dosage: UNK
  9. METOPROLOL TARTRATE [Concomitant]
     Dosage: UNK
  10. ACETYLSALICYLIC ACID [Concomitant]
     Dosage: UNK
  11. RISPERDAL [Concomitant]
     Dosage: UNK
  12. ADVAIR DISKUS 100/50 [Concomitant]
     Dosage: UNK
  13. ALBUTEROL [Concomitant]
     Dosage: UNK
  14. FLOVENT [Concomitant]

REACTIONS (4)
  - COUGH [None]
  - MEDICATION ERROR [None]
  - NAUSEA [None]
  - STOMATITIS [None]
